FAERS Safety Report 8719769 (Version 2)
Quarter: 2012Q4

REPORT INFORMATION
  Report Type: 
  Country: CA (occurrence: CA)
  Receive Date: 20120813
  Receipt Date: 20121015
  Transmission Date: 20130627
  Serious: Yes (Death, Other)
  Sender: FDA-Public Use
  Company Number: PHHY2010CA43364

PATIENT
  Age: 88 Year
  Sex: Female

DRUGS (3)
  1. ACLASTA [Suspect]
     Indication: OSTEOPOROSIS
     Dosage: UNK
     Route: 042
     Dates: start: 20090827
  2. ACLASTA [Suspect]
     Dosage: UNK
     Route: 042
     Dates: start: 20100829
  3. ACLASTA [Suspect]
     Dosage: UNK
     Route: 042
     Dates: start: 20110829

REACTIONS (4)
  - Death [Fatal]
  - Infarction [Unknown]
  - Balance disorder [Not Recovered/Not Resolved]
  - Gait disturbance [Not Recovered/Not Resolved]
